FAERS Safety Report 15935867 (Version 2)
Quarter: 2019Q1

REPORT INFORMATION
  Report Type: Report from Study
  Country: DE (occurrence: DE)
  Receive Date: 20190208
  Receipt Date: 20190223
  Transmission Date: 20190417
  Serious: Yes (Life-Threatening, Other)
  Sender: FDA-Public Use
  Company Number: DE-ACCORD-106004

PATIENT
  Sex: Male

DRUGS (4)
  1. GEFITINIB. [Suspect]
     Active Substance: GEFITINIB
     Indication: SYNOVIAL SARCOMA
     Dosage: 250 MG, UNK
     Route: 048
  2. GEMCITABINE/GEMCITABINE HYDROCHLORIDE [Suspect]
     Active Substance: GEMCITABINE\GEMCITABINE HYDROCHLORIDE
     Indication: SYNOVIAL SARCOMA
     Dosage: 800 MG/M2, UNK
     Route: 042
  3. ICLUSIG [Suspect]
     Active Substance: PONATINIB
     Indication: SYNOVIAL SARCOMA
     Dosage: 30 MG, UNK
     Route: 048
  4. ETOPOSIDE. [Suspect]
     Active Substance: ETOPOSIDE
     Indication: SYNOVIAL SARCOMA
     Dosage: 1 DF (2 X 25 MG/M2), UNK
     Route: 048

REACTIONS (6)
  - Thrombocytopenia [Unknown]
  - Off label use [Unknown]
  - Neutropenia [Unknown]
  - Lymphopenia [Unknown]
  - Anaemia [Unknown]
  - Malignant neoplasm progression [Unknown]
